FAERS Safety Report 18015433 (Version 4)
Quarter: 2021Q2

REPORT INFORMATION
  Report Type: Spontaneous
  Country: US (occurrence: US)
  Receive Date: 20200713
  Receipt Date: 20210624
  Transmission Date: 20210717
  Serious: Yes (Other)
  Sender: FDA-Public Use
  Company Number: US-GILEAD-2020-0481153

PATIENT
  Age: 44 Year
  Sex: Male

DRUGS (17)
  1. ACETAMINOPHEN. [Concomitant]
     Active Substance: ACETAMINOPHEN
  2. VANCOMYCIN [Concomitant]
     Active Substance: VANCOMYCIN
  3. STRIBILD [Suspect]
     Active Substance: COBICISTAT\ELVITEGRAVIR\EMTRICITABINE\TENOFOVIR DISOPROXIL FUMARATE
     Indication: HIV INFECTION
     Dosage: UNK
     Route: 048
     Dates: start: 201501, end: 201610
  4. ATRIPLA [Suspect]
     Active Substance: EFAVIRENZ\EMTRICITABINE\TENOFOVIR DISOPROXIL FUMARATE
     Indication: HIV INFECTION
     Dosage: UNK
     Route: 048
     Dates: start: 2009, end: 2015
  5. ATRIPLA [Suspect]
     Active Substance: EFAVIRENZ\EMTRICITABINE\TENOFOVIR DISOPROXIL FUMARATE
     Dosage: UNK
     Route: 048
     Dates: start: 200906, end: 20161027
  6. IBUPROFEN. [Concomitant]
     Active Substance: IBUPROFEN
  7. ASPIRINE [Concomitant]
     Active Substance: ASPIRIN
  8. TRUVADA [Suspect]
     Active Substance: EMTRICITABINE\TENOFOVIR DISOPROXIL FUMARATE
     Indication: HIV INFECTION
     Dosage: UNK
     Route: 048
     Dates: start: 2001
  9. COMPLERA [Suspect]
     Active Substance: EMTRICITABINE\RILPIVIRINE HYDROCHLORIDE\TENOFOVIR DISOPROXIL FUMARATE
     Indication: HIV INFECTION
     Dosage: UNK
     Route: 048
     Dates: start: 2001
  10. BACTRIM [Concomitant]
     Active Substance: SULFAMETHOXAZOLE\TRIMETHOPRIM
  11. BIKTARVY [Concomitant]
     Active Substance: BICTEGRAVIR SODIUM\EMTRICITABINE\TENOFOVIR ALAFENAMIDE FUMARATE
  12. GENVOYA [Concomitant]
     Active Substance: COBICISTAT\ELVITEGRAVIR\EMTRICITABINE\TENOFOVIR ALAFENAMIDE FUMARATE
  13. VIREAD [Suspect]
     Active Substance: TENOFOVIR DISOPROXIL FUMARATE
     Indication: HIV INFECTION
     Dosage: UNK
     Route: 048
     Dates: start: 2001
  14. PANTOPRAZOLE [Concomitant]
     Active Substance: PANTOPRAZOLE
  15. ESOMEPRAZOLE. [Concomitant]
     Active Substance: ESOMEPRAZOLE MAGNESIUM
  16. TRAMADOL. [Concomitant]
     Active Substance: TRAMADOL
  17. AMOXICILLIN. [Concomitant]
     Active Substance: AMOXICILLIN

REACTIONS (27)
  - Tooth extraction [Not Recovered/Not Resolved]
  - Insomnia [Unknown]
  - Anhedonia [Not Recovered/Not Resolved]
  - Renal injury [Unknown]
  - Bone density decreased [Unknown]
  - Tooth loss [Unknown]
  - Clavicle fracture [Unknown]
  - Oedema [Unknown]
  - Nasal disorder [Unknown]
  - Upper limb fracture [Not Recovered/Not Resolved]
  - Multiple fractures [Unknown]
  - Skeletal injury [Unknown]
  - Injury [Unknown]
  - Depression [Not Recovered/Not Resolved]
  - Hypertension [Unknown]
  - Femur fracture [Unknown]
  - Acetabulum fracture [Unknown]
  - Mycobacterium avium complex infection [Unknown]
  - Abscess limb [Unknown]
  - Emotional distress [Not Recovered/Not Resolved]
  - Nephropathy [Unknown]
  - Anxiety [Not Recovered/Not Resolved]
  - Scapula fracture [Not Recovered/Not Resolved]
  - Bone disorder [Unknown]
  - Post-traumatic stress disorder [Unknown]
  - Pain [Not Recovered/Not Resolved]
  - Arthralgia [Unknown]

NARRATIVE: CASE EVENT DATE: 20120205
